FAERS Safety Report 9623119 (Version 1)
Quarter: 2013Q4

REPORT INFORMATION
  Report Type: Spontaneous
  Country: US (occurrence: None)
  Receive Date: 20131010
  Receipt Date: 20131010
  Transmission Date: 20140711
  Serious: Yes (Hospitalization, Other)
  Sender: FDA-Public Use
  Company Number: 2012-002957

PATIENT
  Age: 56 Year
  Sex: Female
  Weight: 73.4 kg

DRUGS (19)
  1. ACTONEL [Suspect]
     Route: 048
     Dates: start: 200902, end: 201112
  2. PREDNISONE (PREDNISONE) [Concomitant]
  3. LEFLUNOMIDE (LEFLUNOMIDE) [Concomitant]
  4. RITUXAN (RITUXIMAB) [Concomitant]
  5. HYDROCHLOROTHIAZIDE (HYDROCHLOROTHIAZIDE) [Concomitant]
  6. POTASSIUM CHLORIDE (POTASSIUM CHLORIDE) [Concomitant]
  7. ASPIRIN (ACETYLSALICYLIC ACID) [Concomitant]
  8. SOMA (CARISOPRODOL) [Concomitant]
  9. GABAPENTIN (GABAPENTIN) [Concomitant]
  10. LUNESTA (ESZOPICLONE) [Concomitant]
  11. AMBIEN CR (ZOLPIDEM TARTRATE) [Concomitant]
  12. LEXAPRO (ESCITALOPRAM OXALATE) [Concomitant]
  13. OXYCODONE W/PARACETAMOL (OXYCODONE, PARACETAMOL) [Concomitant]
  14. BIFIDOBACTERIUM INFANTIS (BIFIDOBACTERIUM INFANTIS) [Concomitant]
  15. PREVACID (LANSOPRAZOLE) [Concomitant]
  16. AMMONIUM LACTATE (AMMONIUM LACTATE) [Concomitant]
  17. CLOBETASOL (CLOBETASOL) [Concomitant]
  18. HYDROCORTISONE BUTYRATE (HYDROCORTISONE BUTYRATE) [Concomitant]
  19. CALCIUM CARBONATE/VITAMIN D3 (CALCIUM CARBONATE, COLECALCIFEROL) [Concomitant]

REACTIONS (5)
  - Fall [None]
  - Atypical femur fracture [None]
  - Fracture displacement [None]
  - Comminuted fracture [None]
  - Pain in extremity [None]
